FAERS Safety Report 5916599-X (Version None)
Quarter: 2008Q4

REPORT INFORMATION
  Report Type: 
  Country: None (occurrence: None)
  Receive Date: 20081013
  Receipt Date: 20081006
  Transmission Date: 20090506
  Serious: Yes (Hospitalization)
  Sender: FDA-Public Use
  Company Number: GB-MERCK-0810USA01297

PATIENT
  Age: 72 Year
  Sex: Male

DRUGS (14)
  1. PRINIVIL [Suspect]
     Indication: HYPERTENSION
     Route: 048
     Dates: start: 20041201, end: 20080930
  2. CANDESARTAN CILEXETIL [Suspect]
     Indication: HYPERTENSION
     Route: 048
     Dates: start: 20051101
  3. SIMVASTATIN [Suspect]
     Indication: HYPERCHOLESTEROLAEMIA
     Route: 048
     Dates: start: 20080301
  4. ADIZEM [Concomitant]
     Route: 065
  5. ALLOPURINOL [Concomitant]
     Route: 065
  6. DIGOXIN [Concomitant]
     Route: 065
  7. EZETIMIBE [Concomitant]
     Route: 048
  8. FUROSEMIDE [Concomitant]
     Route: 065
  9. GLIMEPIRIDE [Concomitant]
     Route: 065
  10. LEVOTHYROXINE SODIUM [Concomitant]
     Route: 065
  11. METFORMIN [Concomitant]
     Route: 065
  12. NEBIVOLOL [Concomitant]
     Route: 065
  13. PIOGLITAZONE HYDROCHLORIDE [Concomitant]
     Route: 065
  14. WARFARIN SODIUM [Concomitant]
     Route: 065

REACTIONS (6)
  - ANGIOEDEMA [None]
  - DYSPHONIA [None]
  - OROPHARYNGEAL PAIN [None]
  - RESPIRATORY DISTRESS [None]
  - SWOLLEN TONGUE [None]
  - TOOTH INFECTION [None]
